FAERS Safety Report 5109003-5 (Version None)
Quarter: 2006Q3

REPORT INFORMATION
  Report Type: 
  Country: None (occurrence: None)
  Receive Date: 20060918
  Receipt Date: 20060831
  Transmission Date: 20061208
  Serious: Yes (Hospitalization, Other)
  Sender: FDA-Public Use
  Company Number: US200609000158

PATIENT
  Sex: Female

DRUGS (2)
  1. FORTEO [Suspect]
     Indication: OSTEOPOROSIS
     Dates: start: 20060303
  2. FORTEO PEN (FORTEO PEN) [Concomitant]

REACTIONS (9)
  - BONE PAIN [None]
  - CONTUSION [None]
  - HIP ARTHROPLASTY [None]
  - JOINT DISLOCATION [None]
  - PHARMACEUTICAL PRODUCT COMPLAINT [None]
  - SCAR [None]
  - SKIN INJURY [None]
  - WOUND DECOMPOSITION [None]
  - WOUND INFECTION STAPHYLOCOCCAL [None]
